FAERS Safety Report 4719121-9 (Version None)
Quarter: 2005Q3

REPORT INFORMATION
  Report Type: 
  Country: None (occurrence: None)
  Receive Date: 20050719
  Receipt Date: 20050601
  Transmission Date: 20060218
  Serious: Yes (Other)
  Sender: FDA-Public Use
  Company Number: S05-CAN-02440-01

PATIENT
  Age: 52 Year
  Sex: Female

DRUGS (3)
  1. CITALOPRAM HYDROBROMIDE [Suspect]
     Dosage: 40 MG QD
  2. SEROQUEL [Suspect]
     Dosage: 25 MG QD
  3. ZOPICLONE [Suspect]
     Dosage: 7.5 MG QD

REACTIONS (3)
  - DEPRESSED LEVEL OF CONSCIOUSNESS [None]
  - SINUS TACHYCARDIA [None]
  - SOMNOLENCE [None]
